FAERS Safety Report 5135645-7 (Version None)
Quarter: 2006Q4

REPORT INFORMATION
  Report Type: 
  Country: None (occurrence: None)
  Receive Date: 20061026
  Receipt Date: 20061003
  Transmission Date: 20070319
  Serious: Yes (Death)
  Sender: FDA-Public Use
  Company Number: FR-ROCHE-465936

PATIENT
  Age: 40 Year
  Sex: Female

DRUGS (6)
  1. CYMEVAN [Suspect]
     Indication: DRUG USE FOR UNKNOWN INDICATION
     Route: 065
     Dates: start: 20060717, end: 20060719
  2. XIGRIS [Suspect]
     Indication: DRUG USE FOR UNKNOWN INDICATION
     Route: 065
     Dates: start: 20060717, end: 20060719
  3. PROGRAF [Suspect]
     Indication: DRUG USE FOR UNKNOWN INDICATION
     Route: 065
     Dates: start: 20060714, end: 20060720
  4. WELLVONE [Suspect]
     Indication: DRUG USE FOR UNKNOWN INDICATION
     Route: 065
     Dates: start: 20060718, end: 20060724
  5. BACTRIM [Concomitant]
     Dosage: ON 15 JULY 2006 GIVEN AT A HIGH DOSAGE.
     Dates: start: 20060715
  6. IMUREL [Concomitant]
     Dates: end: 20060716

REACTIONS (10)
  - BRADYCARDIA [None]
  - CARDIAC DISORDER [None]
  - HAEMODYNAMIC INSTABILITY [None]
  - LIVER DISORDER [None]
  - NERVOUS SYSTEM DISORDER [None]
  - RENAL DISORDER [None]
  - RESPIRATORY DISORDER [None]
  - RHABDOMYOLYSIS [None]
  - TACHYCARDIA [None]
  - VENTRICULAR ARRHYTHMIA [None]
